FAERS Safety Report 9092453 (Version 2)
Quarter: 2013Q2

REPORT INFORMATION
  Report Type: Spontaneous
  Country: US (occurrence: US)
  Receive Date: 20130131
  Receipt Date: 20130423
  Transmission Date: 20140414
  Serious: Yes (Hospitalization)
  Sender: FDA-Public Use
  Company Number: US-BAYER-2013-012197

PATIENT
  Age: 27 Year
  Sex: Female

DRUGS (18)
  1. YAZ [Suspect]
     Dosage: UNK
     Dates: start: 201001, end: 201006
  2. YAZ [Suspect]
     Dosage: UNK
     Dates: start: 201102, end: 20120123
  3. YASMIN [Suspect]
     Dosage: UNK
     Dates: start: 201102, end: 20120123
  4. INFLUVAC [Concomitant]
     Dosage: UNK
     Dates: start: 201110
  5. TYLENOL [PARACETAMOL] [Concomitant]
     Indication: HEADACHE
     Dosage: UNK UNK, PRN
  6. TUSSIONEX [Concomitant]
     Dosage: UNK
     Dates: start: 20120117
  7. ROCEPHIN [Concomitant]
     Dosage: 1 G, UNK
     Route: 030
     Dates: start: 20120117
  8. DECADRON [Concomitant]
     Dosage: 8 MG, UNK
     Route: 030
     Dates: start: 20120117
  9. DEPO-MEDROL [Concomitant]
     Dosage: 40 MG, UNK
     Route: 030
     Dates: start: 20120117
  10. OMNICEF [Concomitant]
     Dosage: 300 MG, UNK
     Dates: start: 20120118
  11. CEFDINIR [Concomitant]
     Dosage: 300 MG, BID
     Dates: start: 20120118
  12. NYQUIL [Concomitant]
  13. TORADOL [Concomitant]
  14. LEVAQUIN [Concomitant]
  15. PROTONIX [Concomitant]
  16. HYDROCODONE [Concomitant]
     Indication: PAIN
  17. NORCO [Concomitant]
  18. TISSUE PLASMINOGEN ACTIVATOR [Concomitant]

REACTIONS (10)
  - Deep vein thrombosis [Recovering/Resolving]
  - Pulmonary embolism [None]
  - Injury [Recovering/Resolving]
  - Pain [None]
  - Emotional distress [None]
  - General physical health deterioration [Recovering/Resolving]
  - Anxiety [None]
  - Anhedonia [None]
  - Deep vein thrombosis [None]
  - Pelvic venous thrombosis [None]
